FAERS Safety Report 5814830-2 (Version None)
Quarter: 2008Q3

REPORT INFORMATION
  Report Type: 
  Country: None (occurrence: None)
  Receive Date: 20080718
  Receipt Date: 20080707
  Transmission Date: 20090109
  Serious: Yes (Other)
  Sender: FDA-Public Use
  Company Number: HQWYE289321JUL04

PATIENT
  Sex: Female
  Weight: 90.8 kg

DRUGS (3)
  1. PREMPRO [Suspect]
     Indication: HORMONE REPLACEMENT THERAPY
     Dosage: UNKNOWN
     Dates: start: 19981101, end: 20000615
  2. PROVERA [Suspect]
  3. PREMARIN [Suspect]

REACTIONS (3)
  - BREAST CANCER [None]
  - HEART RATE IRREGULAR [None]
  - THROMBOSIS [None]
